FAERS Safety Report 8905500 (Version 1)
Quarter: 2012Q4

REPORT INFORMATION
  Report Type: 
  Country: DE (occurrence: DE)
  Receive Date: 20121111
  Receipt Date: 20121111
  Transmission Date: 20130627
  Serious: Yes (Other)
  Sender: FDA-Public Use
  Company Number: PHHY2012DE102703

PATIENT
  Age: 77 Year
  Sex: Female
  Weight: 63 kg

DRUGS (9)
  1. TASIGNA [Suspect]
     Indication: CHRONIC MYELOID LEUKAEMIA
     Dosage: 200 mg, QD
     Route: 048
     Dates: start: 2000
  2. RAMIPRIL [Concomitant]
     Indication: HYPERTENSION
     Dosage: 2.5 mg, UNK
     Route: 048
  3. MOXONIDIN [Concomitant]
     Indication: HYPERTENSION
     Dosage: 0.2 mg, UNK
  4. CARMEN [Concomitant]
     Indication: CARDIAC FAILURE
     Dosage: 10 mg, UNK
     Route: 048
  5. TOREM [Concomitant]
     Indication: CARDIAC FAILURE
     Dosage: 10 mg, UNK
     Route: 048
  6. AMIODARON [Concomitant]
     Indication: ATRIAL FIBRILLATION
     Dosage: 200 mg, UNK
     Route: 048
  7. CITALOPRAM [Concomitant]
     Indication: DEPRESSION
     Dosage: 30 mg, UNK
     Route: 048
  8. PANTOPRAZOL [Concomitant]
     Indication: ABDOMINAL PAIN UPPER
     Dosage: 40 mg, UNK
  9. MARCUMAR [Concomitant]
     Indication: ATRIAL FIBRILLATION
     Route: 048

REACTIONS (2)
  - Myasthenia gravis [Unknown]
  - Eyelid ptosis [Unknown]
